FAERS Safety Report 7549209-9 (Version None)
Quarter: 2011Q2

REPORT INFORMATION
  Report Type: 
  Country: None (occurrence: None)
  Receive Date: 20110615
  Receipt Date: 20110608
  Transmission Date: 20111010
  Serious: Yes (Hospitalization, Other)
  Sender: FDA-Public Use
  Company Number: PHHY2011BR20629

PATIENT
  Age: 83 Year
  Sex: Female

DRUGS (1)
  1. FORMOTEROL FUMARATE [Suspect]
     Indication: DYSPNOEA

REACTIONS (3)
  - POOR QUALITY DRUG ADMINISTERED [None]
  - BRONCHOPNEUMONIA [None]
  - THROMBOSIS [None]
